FAERS Safety Report 16025554 (Version 1)
Quarter: 2019Q1

REPORT INFORMATION
  Report Type: Report from Study
  Country: None (occurrence: US)
  Receive Date: 20190302
  Receipt Date: 20190302
  Transmission Date: 20190418
  Serious: Yes (Other)
  Sender: FDA-Public Use
  Company Number: US-ABBVIE-19K-163-2630705-00

PATIENT
  Sex: Female

DRUGS (1)
  1. HUMIRA [Suspect]
     Active Substance: ADALIMUMAB
     Indication: CROHN^S DISEASE
     Route: 058

REACTIONS (6)
  - Systemic lupus erythematosus [Unknown]
  - Herpes zoster [Unknown]
  - Pyrexia [Unknown]
  - Depression [Unknown]
  - Diarrhoea [Recovering/Resolving]
  - Rash [Unknown]
